FAERS Safety Report 19153573 (Version 1)
Quarter: 2021Q2

REPORT INFORMATION
  Report Type: Report from Study
  Country: RU (occurrence: RU)
  Receive Date: 20210419
  Receipt Date: 20210419
  Transmission Date: 20210717
  Serious: Yes (Hospitalization, Other)
  Sender: FDA-Public Use
  Company Number: RU-INCYTE CORPORATION-2020IN013591

PATIENT

DRUGS (1)
  1. JAKAVI [Suspect]
     Active Substance: RUXOLITINIB
     Indication: MYELOFIBROSIS
     Dosage: 15 MG, BID
     Route: 065
     Dates: start: 20181028

REACTIONS (22)
  - Supraventricular extrasystoles [Unknown]
  - Neutrophil count decreased [Unknown]
  - Dyspnoea [Unknown]
  - Gamma-glutamyltransferase increased [Unknown]
  - Band neutrophil count increased [Unknown]
  - Blood lactate dehydrogenase increased [Unknown]
  - Blood urea increased [Unknown]
  - Red blood cell sedimentation rate increased [Unknown]
  - Fatigue [Unknown]
  - Prothrombin time prolonged [Unknown]
  - Red blood cell count decreased [Unknown]
  - Platelet count decreased [Unknown]
  - Alanine aminotransferase decreased [Unknown]
  - Anaemia [Not Recovered/Not Resolved]
  - White blood cell count decreased [Unknown]
  - Blast cell count increased [Unknown]
  - Blood alkaline phosphatase increased [Unknown]
  - Dizziness [Unknown]
  - Haemoglobin decreased [Unknown]
  - Myelocyte count increased [Unknown]
  - Protein urine present [Unknown]
  - Thrombin time prolonged [Unknown]

NARRATIVE: CASE EVENT DATE: 20181217
